FAERS Safety Report 13214237 (Version 1)
Quarter: 2017Q1

REPORT INFORMATION
  Report Type: Other
  Country: NO (occurrence: NO)
  Receive Date: 20170210
  Receipt Date: 20170210
  Transmission Date: 20170428
  Serious: Yes (Death)
  Sender: FDA-Public Use
  Company Number: NO-HIKMA PHARMACEUTICALS CO. LTD-2017NO001457

PATIENT

DRUGS (1)
  1. INFLECTRA [Suspect]
     Active Substance: INFLIXIMAB-DYYB
     Indication: CROHN^S DISEASE
     Dosage: 400 MG, UNK
     Route: 065
     Dates: start: 2011, end: 20161220

REACTIONS (2)
  - Disseminated intravascular coagulation [Fatal]
  - Streptococcal sepsis [Fatal]

NARRATIVE: CASE EVENT DATE: 201701
